FAERS Safety Report 9008841 (Version 3)
Quarter: 2013Q4

REPORT INFORMATION
  Report Type: Spontaneous
  Country: GB (occurrence: GB)
  Receive Date: 20130111
  Receipt Date: 20131007
  Transmission Date: 20140711
  Serious: Yes (Other)
  Sender: FDA-Public Use
  Company Number: GB-BAUSCH-BL-2013-000089

PATIENT
  Age: 67 Year
  Sex: Female
  Weight: 64.86 kg

DRUGS (3)
  1. PREDNISOLONE [Suspect]
     Indication: TEMPORAL ARTERITIS
     Route: 065
  2. LISINOPRIL [Suspect]
     Indication: HYPERTENSION
     Route: 048
     Dates: start: 2009, end: 2012
  3. BISOPROLOL [Concomitant]
     Indication: PRODUCT USED FOR UNKNOWN INDICATION
     Route: 065

REACTIONS (11)
  - Blood creatine increased [Recovering/Resolving]
  - Chromaturia [Unknown]
  - Drug interaction [Unknown]
  - Red blood cell sedimentation rate increased [Unknown]
  - Malaise [Unknown]
  - Kidney infection [Recovering/Resolving]
  - Blood potassium increased [Recovering/Resolving]
  - Pollakiuria [Unknown]
  - Pyuria [Recovering/Resolving]
  - Renal failure chronic [Unknown]
  - Urinary tract infection [Recovering/Resolving]
